FAERS Safety Report 23248428 (Version 1)
Quarter: 2023Q4

REPORT INFORMATION
  Report Type: Spontaneous
  Country: US (occurrence: None)
  Receive Date: 20231201
  Receipt Date: 20231201
  Transmission Date: 20240110
  Serious: No
  Sender: FDA-Public Use
  Company Number: 2023A272328

PATIENT
  Sex: Female

DRUGS (1)
  1. PULMICORT FLEXHALER [Suspect]
     Active Substance: BUDESONIDE
     Indication: Asthma
     Route: 055

REACTIONS (5)
  - Gingival disorder [Unknown]
  - Pain [Unknown]
  - Product dose omission issue [Unknown]
  - Drug delivery system issue [Unknown]
  - Drug ineffective [Unknown]
